FAERS Safety Report 11833377 (Version 2)
Quarter: 2016Q1

REPORT INFORMATION
  Report Type: Spontaneous
  Country: US (occurrence: US)
  Receive Date: 20151214
  Receipt Date: 20160209
  Transmission Date: 20160525
  Serious: Yes (Hospitalization, Other)
  Sender: FDA-Public Use
  Company Number: US-CELGENE-USA-2015120783

PATIENT
  Age: 65 Year
  Sex: Female

DRUGS (4)
  1. OTEZLA [Suspect]
     Active Substance: APREMILAST
     Indication: PSORIATIC ARTHROPATHY
     Dosage: 60 MILLIGRAM
     Route: 048
     Dates: start: 20151201, end: 20151231
  2. OTEZLA [Suspect]
     Active Substance: APREMILAST
     Indication: PSORIASIS
  3. BENAZEPRIL [Concomitant]
     Active Substance: BENAZEPRIL HYDROCHLORIDE
     Indication: BLOOD CHOLESTEROL
     Route: 065
  4. AMLODIPINE [Concomitant]
     Active Substance: AMLODIPINE BESYLATE
     Indication: BLOOD PRESSURE MEASUREMENT
     Dosage: 10 MILLIGRAM
     Route: 065

REACTIONS (2)
  - Blood pressure increased [Recovered/Resolved]
  - Headache [Recovered/Resolved]

NARRATIVE: CASE EVENT DATE: 201512
